FAERS Safety Report 7648596-0 (Version None)
Quarter: 2011Q3

REPORT INFORMATION
  Report Type: 
  Country: None (occurrence: None)
  Receive Date: 20110801
  Receipt Date: 20110728
  Transmission Date: 20111222
  Serious: No
  Sender: FDA-Public Use
  Company Number: US-PFIZER INC-2011172614

PATIENT
  Sex: Female
  Weight: 56.236 kg

DRUGS (2)
  1. EFFEXOR XR [Suspect]
     Indication: DEPRESSION
     Dosage: 300 MG, 1X/DAY
     Route: 048
     Dates: end: 20110101
  2. EFFEXOR XR [Suspect]
     Dosage: 150 MG, ALTERNATE DAY
     Dates: start: 20110101

REACTIONS (3)
  - NAUSEA [None]
  - DIZZINESS [None]
  - MALAISE [None]
